FAERS Safety Report 8503072-8 (Version None)
Quarter: 2012Q3

REPORT INFORMATION
  Report Type: 
  Country: None (occurrence: None)
  Receive Date: 20120711
  Receipt Date: 20120629
  Transmission Date: 20120928
  Serious: Yes (Other)
  Sender: FDA-Public Use
  Company Number: FI-ELI_LILLY_AND_COMPANY-FI201206002177

PATIENT
  Sex: Female

DRUGS (4)
  1. PRIMPERAN TAB [Concomitant]
  2. TRAMADOL HYDROCHLORIDE [Concomitant]
     Indication: PAIN
     Dosage: 100 MG, BID
  3. DURAGESIC-100 [Concomitant]
     Indication: PAIN
     Dosage: 12 UNK, UNK
  4. FORTEO [Suspect]
     Indication: OSTEOPOROSIS
     Dosage: 20 UG, QD
     Route: 058
     Dates: start: 20120530

REACTIONS (13)
  - MICTURITION URGENCY [None]
  - DIZZINESS [None]
  - PAIN IN EXTREMITY [None]
  - CEREBROVASCULAR ACCIDENT [None]
  - FLANK PAIN [None]
  - MYALGIA [None]
  - ERYTHEMA [None]
  - NAUSEA [None]
  - ERUCTATION [None]
  - HEADACHE [None]
  - SWELLING FACE [None]
  - ABDOMINAL PAIN UPPER [None]
  - ANXIETY [None]
